FAERS Safety Report 4498250-1 (Version None)
Quarter: 2004Q3

REPORT INFORMATION
  Report Type: 
  Country: None (occurrence: None)
  Receive Date: 20040927
  Receipt Date: 20040609
  Transmission Date: 20050211
  Serious: No
  Sender: FDA-Public Use
  Company Number: USA040669745

PATIENT
  Age: 46 Year
  Sex: Male
  Weight: 118 kg

DRUGS (9)
  1. STRATTERA [Suspect]
     Dosage: 40 MG
     Dates: start: 20040608
  2. ZOLOFT [Concomitant]
  3. KLONOPIN [Concomitant]
  4. TOPAMAX [Concomitant]
  5. MORPHINE [Concomitant]
  6. ZANAFLEX [Concomitant]
  7. LOVASTATIN [Concomitant]
  8. OXYCODONE HCL [Concomitant]
  9. FLOMAX [Concomitant]

REACTIONS (4)
  - COLD SWEAT [None]
  - NAUSEA [None]
  - RETCHING [None]
  - SOMNOLENCE [None]
